FAERS Safety Report 7637664-5 (Version None)
Quarter: 2011Q3

REPORT INFORMATION
  Report Type: 
  Country: None (occurrence: None)
  Receive Date: 20110726
  Receipt Date: 20110509
  Transmission Date: 20111222
  Serious: No
  Sender: FDA-Public Use
  Company Number: US-AMGEN-USASP2011024037

PATIENT
  Age: 10 Year
  Sex: Female

DRUGS (8)
  1. NIFEREX                            /00198301/ [Concomitant]
  2. ENALAPRIL MALEATE [Concomitant]
  3. EPOGEN [Suspect]
     Indication: RENAL IMPAIRMENT
     Dosage: UNK UNK, Q2WK
  4. BICITRA                            /00586801/ [Concomitant]
  5. SEPTRA [Concomitant]
  6. CALCIUM CARBONATE [Concomitant]
  7. LASIX [Concomitant]
  8. CALCITRIOL [Concomitant]

REACTIONS (1)
  - INJECTION SITE PAIN [None]
